FAERS Safety Report 15517969 (Version 1)
Quarter: 2018Q4

REPORT INFORMATION
  Report Type: Spontaneous
  Country: US (occurrence: US)
  Receive Date: 20181011
  Receipt Date: 20181011
  Transmission Date: 20190205
  Serious: Yes (Other)
  Sender: FDA-Public Use
  Company Number: None

PATIENT
  Age: 47 Year
  Sex: Female

DRUGS (9)
  1. IMITREX [Concomitant]
     Active Substance: SUMATRIPTAN SUCCINATE
  2. ZOCOR [Concomitant]
     Active Substance: SIMVASTATIN
  3. COSENTYX [Suspect]
     Active Substance: SECUKINUMAB
     Indication: PSORIATIC ARTHROPATHY
     Route: 058
     Dates: start: 201805, end: 201809
  4. GABAPENTIN. [Concomitant]
     Active Substance: GABAPENTIN
  5. METFORMIN [Concomitant]
     Active Substance: METFORMIN HYDROCHLORIDE
  6. SYNTHROID [Concomitant]
     Active Substance: LEVOTHYROXINE SODIUM
  7. RANITIDINE. [Concomitant]
     Active Substance: RANITIDINE
  8. BUPROPION. [Concomitant]
     Active Substance: BUPROPION
  9. ETODOLAC. [Concomitant]
     Active Substance: ETODOLAC

REACTIONS (1)
  - Hepatitis C [None]

NARRATIVE: CASE EVENT DATE: 201810
